FAERS Safety Report 10017519 (Version 2)
Quarter: 2014Q2

REPORT INFORMATION
  Report Type: Spontaneous
  Country: US (occurrence: US)
  Receive Date: 20140318
  Receipt Date: 20140409
  Transmission Date: 20141212
  Serious: Yes (Hospitalization, Other)
  Sender: FDA-Public Use
  Company Number: US-AMGEN-USASP2014018217

PATIENT
  Age: 63 Year
  Sex: Female

DRUGS (1)
  1. ENBREL [Suspect]
     Indication: PSORIASIS
     Dosage: 50 MG, 2 TIMES/WK
     Route: 065
     Dates: start: 20070101

REACTIONS (5)
  - Pulmonary mass [Recovered/Resolved]
  - Psoriasis [Not Recovered/Not Resolved]
  - Hypoaesthesia [Recovered/Resolved]
  - Thyroid neoplasm [Recovered/Resolved]
  - Nasopharyngitis [Recovered/Resolved]
